FAERS Safety Report 23051003 (Version 1)
Quarter: 2023Q4

REPORT INFORMATION
  Report Type: Spontaneous
  Country: US (occurrence: US)
  Receive Date: 20231010
  Receipt Date: 20231010
  Transmission Date: 20240109
  Serious: No
  Sender: FDA-Public Use
  Company Number: US-SA-SAC20231004001275

PATIENT
  Sex: Male
  Weight: 79.8 kg

DRUGS (4)
  1. DUPIXENT [Suspect]
     Active Substance: DUPILUMAB
     Indication: Dermatitis atopic
     Dosage: 300 MG QOW
     Route: 058
  2. DUPIXENT [Suspect]
     Active Substance: DUPILUMAB
     Dosage: 300 MG QW
     Route: 058
  3. SIMVASTATIN [Concomitant]
     Active Substance: SIMVASTATIN
  4. PIOGLITAZONE [Concomitant]
     Active Substance: PIOGLITAZONE

REACTIONS (2)
  - Dermatitis atopic [Unknown]
  - Inappropriate schedule of product administration [Unknown]
